FAERS Safety Report 10581652 (Version 1)
Quarter: 2014Q4

REPORT INFORMATION
  Report Type: Spontaneous
  Country: US (occurrence: None)
  Receive Date: 20141112
  Receipt Date: 20141112
  Transmission Date: 20150529
  Serious: Yes (Hospitalization)
  Sender: FDA-Public Use
  Company Number: DL2014-00978

PATIENT
  Age: 32 Year
  Sex: Female

DRUGS (3)
  1. MIFEPRISTONE [Suspect]
     Active Substance: MIFEPRISTONE
     Indication: ABORTION INDUCED
     Route: 048
     Dates: start: 20140214
  2. MISOPROSTOL. [Suspect]
     Active Substance: MISOPROSTOL
     Dosage: 800MCG BUCCAL NOT TAKEN
     Route: 002
  3. METRONIDAZOLE 500MG [Concomitant]
     Active Substance: METRONIDAZOLE

REACTIONS (5)
  - Malaise [None]
  - Chest pain [None]
  - Abortion incomplete [None]
  - Exposure during pregnancy [None]
  - Pulmonary embolism [None]

NARRATIVE: CASE EVENT DATE: 20140214
